FAERS Safety Report 11700949 (Version 2)
Quarter: 2015Q4

REPORT INFORMATION
  Report Type: Spontaneous
  Country: FR (occurrence: FR)
  Receive Date: 20151105
  Receipt Date: 20151110
  Transmission Date: 20160304
  Serious: Yes (Other)
  Sender: FDA-Public Use
  Company Number: FR-JNJFOC-20151101539

PATIENT
  Age: 42 Year
  Sex: Male
  Weight: 80 kg

DRUGS (1)
  1. SIMPONI [Suspect]
     Active Substance: GOLIMUMAB
     Indication: ENTEROCOLITIS HAEMORRHAGIC
     Route: 058
     Dates: start: 20150617

REACTIONS (3)
  - Off label use [Unknown]
  - Enterocolitis haemorrhagic [Unknown]
  - Product use issue [Unknown]

NARRATIVE: CASE EVENT DATE: 20150617
